FAERS Safety Report 4835677-X (Version None)
Quarter: 2005Q4

REPORT INFORMATION
  Report Type: 
  Country: None (occurrence: None)
  Receive Date: 20051121
  Receipt Date: 20051106
  Transmission Date: 20060501
  Serious: Yes (Other)
  Sender: FDA-Public Use
  Company Number: 2005151587

PATIENT
  Sex: Male
  Weight: 54.4316 kg

DRUGS (3)
  1. BENADRYL [Suspect]
     Indication: URTICARIA
     Dosage: 37.5 MG, ORAL
     Route: 048
     Dates: end: 20051103
  2. LORATADINE [Concomitant]
  3. SERTRALINE HCL [Concomitant]

REACTIONS (1)
  - MUSCLE DISORDER [None]
